FAERS Safety Report 7009315-4 (Version None)
Quarter: 2010Q3

REPORT INFORMATION
  Report Type: 
  Country: None (occurrence: None)
  Receive Date: 20100923
  Receipt Date: 20100916
  Transmission Date: 20110219
  Serious: Yes (Death)
  Sender: FDA-Public Use
  Company Number: JP-NOVOPROD-314916

PATIENT
  Age: 54 Year
  Sex: Male
  Weight: 97 kg

DRUGS (5)
  1. NOVOSEVEN [Suspect]
     Indication: ACQUIRED HAEMOPHILIA
     Dosage: 20 MG, UNK
     Route: 042
     Dates: start: 20100915, end: 20100915
  2. RABEPRAZOLE SODIUM [Concomitant]
     Dosage: 10 MG, QD
     Route: 048
     Dates: start: 20100901
  3. PREDNISOLONE [Concomitant]
     Dosage: 10 MG, QD
     Route: 048
     Dates: start: 20100901
  4. MAGNESIUM OXIDE [Concomitant]
     Dosage: 1800 MG, QD
     Route: 048
     Dates: start: 20100901
  5. WHOLE BLOOD [Concomitant]
     Dosage: 8 UNITS
     Dates: start: 20100915

REACTIONS (1)
  - SHOCK HAEMORRHAGIC [None]
